FAERS Safety Report 7198577-9 (Version None)
Quarter: 2010Q4

REPORT INFORMATION
  Report Type: 
  Country: None (occurrence: None)
  Receive Date: 20101227
  Receipt Date: 20101220
  Transmission Date: 20110411
  Serious: Yes (Death, Life-Threatening, Hospitalization)
  Sender: FDA-Public Use
  Company Number: AU-JNJFOC-20100602626

PATIENT
  Sex: Female

DRUGS (8)
  1. DURAGESIC-100 [Suspect]
     Indication: HEPATIC NEOPLASM MALIGNANT
     Dosage: 25 MCG/ HR AND 50 MCG/ HR
     Route: 062
  2. DURAGESIC-100 [Suspect]
     Indication: BONE NEOPLASM MALIGNANT
     Dosage: 25 MCG/ HR AND 50 MCG/ HR
     Route: 062
  3. NORSPAN [Suspect]
     Indication: PRODUCT USED FOR UNKNOWN INDICATION
     Route: 065
  4. ORDINE [Suspect]
     Indication: PRODUCT USED FOR UNKNOWN INDICATION
     Dosage: 2-4 ML/ 4 HOUR AS NEEDED
     Route: 065
  5. PANAMAX [Suspect]
     Indication: ANALGESIC THERAPY
     Dosage: 500 MG 2 TABLETS
     Route: 065
  6. TWOCAL HN [Suspect]
     Indication: PRODUCT USED FOR UNKNOWN INDICATION
     Route: 065
  7. UNKNOWN MEDICATION [Suspect]
     Indication: INSOMNIA
     Route: 065
  8. UNKNOWN MEDICATION [Suspect]
     Indication: PROPHYLAXIS OF NAUSEA AND VOMITING
     Route: 065

REACTIONS (3)
  - DEATH [None]
  - FALL [None]
  - HIP FRACTURE [None]
